FAERS Safety Report 13574695 (Version 2)
Quarter: 2017Q4

REPORT INFORMATION
  Report Type: Spontaneous
  Country: JP (occurrence: JP)
  Receive Date: 20170523
  Receipt Date: 20171002
  Transmission Date: 20180320
  Serious: Yes (Disabling, Congenital Anomaly, Other)
  Sender: FDA-Public Use
  Company Number: JP-GILEAD-2017-0273709

PATIENT
  Age: 0 Year
  Sex: Female
  Weight: 2.83 kg

DRUGS (3)
  1. FERROMIA [Concomitant]
     Active Substance: SODIUM FERROUS CITRATE
     Dosage: UNK
     Route: 064
     Dates: start: 20161213, end: 20161226
  2. COPEGUS [Suspect]
     Active Substance: RIBAVIRIN
     Indication: CHRONIC HEPATITIS C
     Dosage: 400 MG, BID
     Route: 064
     Dates: start: 20150915, end: 20151207
  3. SOVALDI [Suspect]
     Active Substance: SOFOSBUVIR
     Indication: CHRONIC HEPATITIS C
     Dosage: 400 MG, QD
     Route: 064
     Dates: start: 20150915, end: 20151207

REACTIONS (20)
  - Aortic restenosis [Recovering/Resolving]
  - Pulmonary arterial pressure increased [Recovering/Resolving]
  - Double outlet right ventricle [Not Recovered/Not Resolved]
  - Ventricular septal defect [Not Recovered/Not Resolved]
  - Hypoplastic left heart syndrome [Not Recovered/Not Resolved]
  - Atrial septal defect [Not Recovered/Not Resolved]
  - Congenital coronary artery malformation [Not Recovered/Not Resolved]
  - Congenital aortic anomaly [Not Recovered/Not Resolved]
  - Congenital aortic anomaly [Unknown]
  - Atrial septal defect [Unknown]
  - Patent ductus arteriosus [Unknown]
  - Cardiomegaly [Unknown]
  - Coarctation of the aorta [Not Recovered/Not Resolved]
  - Congenital tricuspid valve incompetence [Unknown]
  - Fallot^s tetralogy [Unknown]
  - Congenital mitral valve stenosis [Not Recovered/Not Resolved]
  - Hydronephrosis [Unknown]
  - Angiogram pulmonary abnormal [Unknown]
  - Atrial septal defect [Recovering/Resolving]
  - Foetal exposure during pregnancy [Recovered/Resolved]

NARRATIVE: CASE EVENT DATE: 2016
